FAERS Safety Report 8951349 (Version 1)
Quarter: 2012Q4

REPORT INFORMATION
  Report Type: Spontaneous
  Country: GB (occurrence: None)
  Receive Date: 20121129
  Receipt Date: 20121129
  Transmission Date: 20130627
  Serious: No
  Sender: FDA-Public Use
  Company Number: GB-DEXPHARM-20121599

PATIENT
  Sex: Male

DRUGS (1)
  1. OMEPRAZOLE [Suspect]
     Indication: ABDOMINAL PAIN
     Dates: end: 201106

REACTIONS (17)
  - Dehydration [None]
  - Skin depigmentation [None]
  - Dermatitis [None]
  - Malaise [None]
  - Skin exfoliation [None]
  - Gastrooesophageal reflux disease [None]
  - Hair colour changes [None]
  - Alopecia [None]
  - Tooth injury [None]
  - Drug ineffective [None]
  - Mass [None]
  - Skin discolouration [None]
  - Gastric ulcer [None]
  - Photosensitivity reaction [None]
  - Chromaturia [None]
  - Abdominal discomfort [None]
  - Melanocytic naevus [None]
